FAERS Safety Report 5975054-1 (Version None)
Quarter: 2008Q4

REPORT INFORMATION
  Report Type: 
  Country: None (occurrence: None)
  Receive Date: 20081128
  Receipt Date: 20081118
  Transmission Date: 20090506
  Serious: Yes (Hospitalization)
  Sender: FDA-Public Use
  Company Number: 2008-187088-NL

PATIENT

DRUGS (10)
  1. MIRTAZAPINE [Suspect]
     Indication: DEPRESSION
     Dosage: 15 MG QD/30 MG
     Route: 048
     Dates: start: 20080723, end: 20080723
  2. MIRTAZAPINE [Suspect]
     Indication: DEPRESSION
     Dosage: 15 MG QD/30 MG
     Route: 048
     Dates: start: 20080724, end: 20080807
  3. CIPROFLOXACIN [Suspect]
     Dosage: 250 MG BID
     Route: 048
     Dates: start: 20080729, end: 20080807
  4. ACETAMINOPHEN [Suspect]
     Dosage: 500 MG TID/500 MG QID
     Route: 048
     Dates: start: 20080725, end: 20080725
  5. ACETAMINOPHEN [Suspect]
     Dosage: 500 MG TID/500 MG QID
     Route: 048
     Dates: start: 20080726, end: 20080805
  6. IBUPROFEN TABLETS [Concomitant]
  7. TAMSULOSIN HCL [Concomitant]
  8. PANTOPRAZOLE SODIUM [Concomitant]
  9. ROPINIROLE HYDROCHLORIDE [Concomitant]
  10. LORAZEPAM [Concomitant]

REACTIONS (1)
  - HEPATITIS ACUTE [None]
